FAERS Safety Report 6341345-8 (Version None)
Quarter: 2009Q3

REPORT INFORMATION
  Report Type: 
  Country: None (occurrence: None)
  Receive Date: 20090904
  Receipt Date: 20090826
  Transmission Date: 20100115
  Serious: Yes (Hospitalization)
  Sender: FDA-Public Use
  Company Number: PHHO2009DE09701

PATIENT
  Sex: Male
  Weight: 76 kg

DRUGS (2)
  1. RAD 666 RAD+TAB [Suspect]
     Indication: RENAL TRANSPLANT
     Dosage: 1.5 MG, BID
     Route: 048
     Dates: start: 20090611
  2. MYFORTIC [Suspect]
     Indication: RENAL TRANSPLANT
     Dosage: OPEN LABEL
     Route: 048
     Dates: start: 20090310

REACTIONS (3)
  - ALBUMINURIA [None]
  - PROTEINURIA [None]
  - RENAL TUBULAR ATROPHY [None]
